FAERS Safety Report 18768257 (Version 1)
Quarter: 2021Q1

REPORT INFORMATION
  Report Type: Spontaneous
  Country: US (occurrence: US)
  Receive Date: 20210121
  Receipt Date: 20210121
  Transmission Date: 20210419
  Serious: No
  Sender: FDA-Public Use
  Company Number: US-BAYER-2021-023092

PATIENT
  Age: 63 Year
  Sex: Female

DRUGS (5)
  1. FLONASE [MOMETASONE FUROATE] [Concomitant]
     Active Substance: MOMETASONE FUROATE
  2. CLARITIN [Suspect]
     Active Substance: LORATADINE
     Indication: NASOPHARYNGITIS
  3. CLARITIN [Suspect]
     Active Substance: LORATADINE
     Dosage: 1 DF, OM
  4. SINGULAIR [Concomitant]
     Active Substance: MONTELUKAST SODIUM
  5. CLARITIN [Suspect]
     Active Substance: LORATADINE
     Indication: HYPERSENSITIVITY
     Dosage: UNK
     Route: 048

REACTIONS (2)
  - Extra dose administered [Unknown]
  - Drug ineffective [None]
